FAERS Safety Report 8321223-5 (Version None)
Quarter: 2012Q2

REPORT INFORMATION
  Report Type: 
  Country: None (occurrence: None)
  Receive Date: 20120426
  Receipt Date: 20120418
  Transmission Date: 20120825
  Serious: Yes (Other)
  Sender: FDA-Public Use
  Company Number: GER/GER/12/0023992

PATIENT
  Age: 34 Year
  Sex: Female
  Weight: 52 kg

DRUGS (8)
  1. FLUOXETINE HCL [Suspect]
     Indication: DEPRESSION
     Dosage: 20 MG, 1 IN 1 D, ORAL
     Route: 048
     Dates: start: 20100130
  2. FOLSAURE (FOLIC ACID) [Concomitant]
  3. LEVOTHYROXINE SODIUM [Concomitant]
  4. VALLIUM (DIAZEPAM) [Concomitant]
  5. ZOLPIDEM [Concomitant]
  6. MOVICAL (POLYETHYL. GLYC. W/POTAS. CHLOR./SOD. BICARB.) [Concomitant]
  7. RENNIE (RENNIES) [Concomitant]
  8. SEDACUR (SEDACUR) [Concomitant]

REACTIONS (3)
  - PREGNANCY [None]
  - CAESAREAN SECTION [None]
  - MATERNAL EXPOSURE DURING PREGNANCY [None]
